FAERS Safety Report 15864051 (Version 1)
Quarter: 2018Q4

REPORT INFORMATION
  Report Type: Spontaneous
  Country: US (occurrence: US)
  Receive Date: 20181228
  Receipt Date: 20181228
  Transmission Date: 20190205
  Serious: Yes (Life-Threatening, Hospitalization)
  Sender: FDA-Public Use
  Company Number: None

PATIENT
  Age: 60 Year
  Sex: Female

DRUGS (2)
  1. LITHIUM. [Suspect]
     Active Substance: LITHIUM
     Indication: BIPOLAR DISORDER
     Route: 048
     Dates: start: 20181026, end: 20181108
  2. LITHIUM. [Suspect]
     Active Substance: LITHIUM
     Indication: MANIA

REACTIONS (2)
  - Acute kidney injury [None]
  - Mental status changes [None]

NARRATIVE: CASE EVENT DATE: 20181103
